FAERS Safety Report 7088393-0 (Version None)
Quarter: 2010Q4

REPORT INFORMATION
  Report Type: 
  Country: None (occurrence: None)
  Receive Date: 20101029
  Receipt Date: 20101014
  Transmission Date: 20110411
  Serious: Yes (Hospitalization, Other)
  Sender: FDA-Public Use
  Company Number: ACO_02766_2010

PATIENT
  Sex: Female
  Weight: 71.2147 kg

DRUGS (8)
  1. AMPYRA [Suspect]
     Indication: GAIT DISTURBANCE
     Dosage: (10 MG BID ORAL)
     Route: 048
     Dates: start: 20100928, end: 20101008
  2. BACLOFEN [Concomitant]
  3. DETROL [Concomitant]
  4. RITALIN [Concomitant]
  5. PAXIL [Concomitant]
  6. ESTROSTEP [Concomitant]
  7. AVONEX [Concomitant]
  8. SUDAFED /00076302/ [Concomitant]

REACTIONS (6)
  - BALANCE DISORDER [None]
  - CONDITION AGGRAVATED [None]
  - DYSPNOEA [None]
  - GAIT DISTURBANCE [None]
  - PULMONARY EMBOLISM [None]
  - URINARY TRACT INFECTION [None]
